FAERS Safety Report 5067877-0 (Version None)
Quarter: 2006Q3

REPORT INFORMATION
  Report Type: 
  Country: None (occurrence: None)
  Receive Date: 20060717
  Receipt Date: 20051216
  Transmission Date: 20061208
  Serious: Yes (Hospitalization)
  Sender: FDA-Public Use
  Company Number: 2005002396

PATIENT
  Age: 71 Year
  Sex: Female

DRUGS (6)
  1. TARCEVA [Suspect]
     Indication: LUNG NEOPLASM MALIGNANT
     Dosage: 150 MG (QD), ORAL; SEE IMAGE
     Route: 048
     Dates: start: 20050124
  2. TARCEVA [Suspect]
     Indication: LUNG NEOPLASM MALIGNANT
     Dosage: 150 MG (QD), ORAL; SEE IMAGE
     Route: 048
     Dates: start: 20051101
  3. HYDROCODONE (HYDROCODONE) [Concomitant]
  4. ATENOLOL [Concomitant]
  5. NORVASC [Concomitant]
  6. ASPIRIN [Concomitant]

REACTIONS (7)
  - BLOOD URINE PRESENT [None]
  - DEHYDRATION [None]
  - DIARRHOEA [None]
  - PLEURAL EFFUSION [None]
  - PULMONARY OEDEMA [None]
  - SYNCOPE [None]
  - VOMITING [None]
